FAERS Safety Report 8270807-1 (Version None)
Quarter: 2012Q1

REPORT INFORMATION
  Report Type: 
  Country: None (occurrence: None)
  Receive Date: 20120308
  Receipt Date: 20120202
  Transmission Date: 20120608
  Serious: No
  Sender: FDA-Public Use
  Company Number: PHEH2012US003026

PATIENT
  Sex: Male

DRUGS (2)
  1. FANAPT [Suspect]
  2. WELLBUTRIN [Concomitant]

REACTIONS (1)
  - EJACULATION DISORDER [None]
